FAERS Safety Report 10168886 (Version 2)
Quarter: 2014Q3

REPORT INFORMATION
  Report Type: Spontaneous
  Country: US (occurrence: US)
  Receive Date: 20140513
  Receipt Date: 20140708
  Transmission Date: 20150326
  Serious: Yes (Other)
  Sender: FDA-Public Use
  Company Number: US-TEVA-480963USA

PATIENT

DRUGS (2)
  1. CARBOPLATIN. [Suspect]
     Active Substance: CARBOPLATIN
  2. PACLITAXEL. [Suspect]
     Active Substance: PACLITAXEL

REACTIONS (6)
  - Tachycardia [Unknown]
  - Nausea [Unknown]
  - Chest discomfort [Recovered/Resolved]
  - Dyspnoea [Recovered/Resolved]
  - Bronchospasm [Unknown]
  - Flushing [Unknown]

NARRATIVE: CASE EVENT DATE: 20140204
